FAERS Safety Report 6501438-9 (Version None)
Quarter: 2009Q4

REPORT INFORMATION
  Report Type: 
  Country: None (occurrence: None)
  Receive Date: 20091127
  Receipt Date: 20090209
  Transmission Date: 20100525
  Serious: Yes (Other)
  Sender: FDA-Public Use
  Company Number: WAES 0704USA04122

PATIENT
  Age: 50 Year
  Sex: Female
  Weight: 47.6277 kg

DRUGS (6)
  1. FOSAMAX [Suspect]
     Indication: BONE DENSITY DECREASED
     Dosage: 35 MG/WKY/PO;  70 MG/WKY/PO
     Route: 048
     Dates: start: 20021201, end: 20031201
  2. FOSAMAX [Suspect]
     Indication: OSTEOPENIA
     Dosage: 35 MG/WKY/PO;  70 MG/WKY/PO
     Route: 048
     Dates: start: 20021201, end: 20031201
  3. FOSAMAX [Suspect]
     Indication: BONE DENSITY DECREASED
     Dosage: 35 MG/WKY/PO;  70 MG/WKY/PO
     Route: 048
     Dates: start: 20031201, end: 20050701
  4. FOSAMAX [Suspect]
     Indication: OSTEOPENIA
     Dosage: 35 MG/WKY/PO;  70 MG/WKY/PO
     Route: 048
     Dates: start: 20031201, end: 20050701
  5. ASACOL [Concomitant]
  6. ROWASA [Concomitant]

REACTIONS (7)
  - ANXIETY [None]
  - APHTHOUS STOMATITIS [None]
  - CHRONIC SINUSITIS [None]
  - DEPRESSION [None]
  - DYSPNOEA [None]
  - HYPOTENSION [None]
  - OSTEONECROSIS [None]
